FAERS Safety Report 9957038 (Version 1)
Quarter: 2014Q1

REPORT INFORMATION
  Report Type: Report from Study
  Country: US (occurrence: US)
  Receive Date: 20140304
  Receipt Date: 20140304
  Transmission Date: 20141002
  Serious: No
  Sender: FDA-Public Use
  Company Number: US-ABBVIE-13P-163-1099424-00

PATIENT
  Age: 49 Year
  Sex: Female

DRUGS (8)
  1. HUMIRA [Suspect]
     Indication: PSORIASIS
     Dosage: LOADING DOSE
     Dates: start: 20130601
  2. METOPROLOL SR [Concomitant]
     Indication: PALPITATIONS
  3. SYNTHROID [Concomitant]
     Indication: HORMONE REPLACEMENT THERAPY
  4. LASIX [Concomitant]
     Indication: LOCAL SWELLING
  5. DOXYCYCLINE [Concomitant]
     Indication: RASH
  6. CLOBETASOL [Concomitant]
     Indication: PSORIASIS
     Dosage: TO AFFECTED AREAS
     Route: 061
  7. METROGEL [Concomitant]
     Indication: ROSACEA
     Dosage: APPLY TO FACE TWICE A DAY
  8. CALCIPOTRIENE [Concomitant]
     Indication: PSORIASIS
     Dosage: TO AFFECTED AREAS

REACTIONS (4)
  - Device malfunction [Unknown]
  - Incorrect dose administered [Unknown]
  - Injection site pain [Unknown]
  - Injection site pain [Recovered/Resolved]
